FAERS Safety Report 9498279 (Version 1)
Quarter: 2013Q3

REPORT INFORMATION
  Report Type: Spontaneous
  Country: US (occurrence: None)
  Receive Date: 20130903
  Receipt Date: 20130903
  Transmission Date: 20140515
  Serious: Yes (Other)
  Sender: FDA-Public Use
  Company Number: None

PATIENT
  Age: 70 Year
  Sex: Female
  Weight: 42 kg

DRUGS (9)
  1. VORICONAZOLE [Suspect]
     Indication: BRONCHOPULMONARY ASPERGILLOSIS
     Route: 048
     Dates: start: 20130722, end: 20130726
  2. LEVOFLOXACIN [Concomitant]
  3. ZOSYN [Concomitant]
  4. VANCOMYCIN [Concomitant]
  5. GABAPENTIN [Concomitant]
  6. MORPHINE [Concomitant]
  7. OXYBUTYNIN [Concomitant]
  8. HALOPERIDOL [Concomitant]
  9. LISINOPRIL [Concomitant]

REACTIONS (3)
  - Hallucination [None]
  - Confusional state [None]
  - Mental status changes [None]
